FAERS Safety Report 10518307 (Version 1)
Quarter: 2014Q4

REPORT INFORMATION
  Report Type: Spontaneous
  Country: IN (occurrence: IN)
  Receive Date: 20141015
  Receipt Date: 20141015
  Transmission Date: 20150528
  Serious: Yes (Death, Other)
  Sender: FDA-Public Use
  Company Number: IN-ACCORD-026347

PATIENT
  Age: 50 Year
  Sex: Male

DRUGS (1)
  1. METHOTREXATE [Suspect]
     Active Substance: METHOTREXATE
     Indication: PSORIASIS
     Route: 048

REACTIONS (9)
  - Mucosal ulceration [Unknown]
  - Pyrexia [Unknown]
  - Skin ulcer [Unknown]
  - Dysphagia [Unknown]
  - Acute respiratory failure [Fatal]
  - Self-medication [Unknown]
  - Toxicity to various agents [Unknown]
  - Bone marrow failure [Unknown]
  - Liver function test abnormal [Unknown]
